FAERS Safety Report 18907572 (Version 1)
Quarter: 2021Q1

REPORT INFORMATION
  Report Type: Other
  Country: None (occurrence: US)
  Receive Date: 20210217
  Receipt Date: 20210217
  Transmission Date: 20210420
  Serious: Yes (Hospitalization)
  Sender: FDA-Public Use
  Company Number: US-B.BRAUN MEDICAL INC.-2106932

PATIENT
  Age: 5 Month
  Sex: Female
  Weight: 6.8 kg

DRUGS (3)
  1. SODIUM CHLORIDE INJECTION USP 0264?7800?09 [Suspect]
     Active Substance: SODIUM CHLORIDE
     Indication: HYPONATRAEMIA
  2. VASOPRESSIN. [Concomitant]
     Active Substance: VASOPRESSIN
     Route: 042
  3. SODIUM CHLORIDE TABLETS [Concomitant]

REACTIONS (2)
  - Polyuria [None]
  - Hypernatraemia [None]
